FAERS Safety Report 9324438 (Version 1)
Quarter: 2013Q2

REPORT INFORMATION
  Report Type: Spontaneous
  Country: US (occurrence: US)
  Receive Date: 20130603
  Receipt Date: 20130603
  Transmission Date: 20140414
  Serious: Yes (Hospitalization, Other)
  Sender: FDA-Public Use
  Company Number: US-BAYER-2013-066543

PATIENT
  Age: 24 Year
  Sex: Female
  Weight: 65.76 kg

DRUGS (8)
  1. YAZ [Suspect]
  2. CETIRIZINE [Concomitant]
     Dosage: 10 MG, QD
     Route: 048
  3. AZITHROMYCIN [Concomitant]
     Dosage: 250 MG PAK. TAKE 2 TABLETS ON DAY 1, THEN 1 TABLET ON DAYS 2-5.
     Route: 048
  4. FLUCONAZOLE [Concomitant]
     Dosage: 150 MG TAB. TAKE 1 TABLET EVERY DAY FOR 3
  5. PREDNISONE [Concomitant]
     Dosage: 20 MG- TAKE 3 EVERY DAY FOR 3 DAYS, THEN 2 EVERY DAY FOR 3 DAYS , THEN 1 EVERY DAY FOR 3 DAYS
  6. TOPIRAMATE [Concomitant]
     Dosage: 50 MG, BID
     Route: 048
  7. HYDROXYZINE PAMOATE [Concomitant]
     Dosage: 50 MG, UNK
     Route: 048
  8. VERAPAMIL [Concomitant]
     Dosage: 40 MG, TID
     Route: 048

REACTIONS (2)
  - Thrombophlebitis superficial [None]
  - Deep vein thrombosis [None]
